FAERS Safety Report 6188746-9 (Version None)
Quarter: 2009Q2

REPORT INFORMATION
  Report Type: 
  Country: None (occurrence: None)
  Receive Date: 20090511
  Receipt Date: 20090511
  Transmission Date: 20091009
  Serious: Yes (Life-Threatening, Other)
  Sender: FDA-Public Use
  Company Number: None

PATIENT
  Age: 69 Year
  Sex: Female
  Weight: 86.1834 kg

DRUGS (2)
  1. VITAMIN D [Suspect]
     Indication: VITAMIN SUPPLEMENTATION
     Dosage: 1 EVERY WEEK PO
     Route: 048
     Dates: start: 20090423, end: 20090423
  2. VITAMIN D [Suspect]
     Indication: VITAMIN SUPPLEMENTATION
     Dates: start: 20090430, end: 20090430

REACTIONS (9)
  - BLOOD PRESSURE SYSTOLIC INCREASED [None]
  - DIZZINESS [None]
  - DRUG INTERACTION [None]
  - HEADACHE [None]
  - HEART RATE INCREASED [None]
  - INFLUENZA [None]
  - NAUSEA [None]
  - NO THERAPEUTIC RESPONSE [None]
  - PALPITATIONS [None]
